FAERS Safety Report 11915732 (Version 1)
Quarter: 2016Q1

REPORT INFORMATION
  Report Type: Spontaneous
  Country: US (occurrence: None)
  Receive Date: 20160113
  Receipt Date: 20160113
  Transmission Date: 20160526
  Serious: No
  Sender: FDA-Public Use
  Company Number: None

PATIENT
  Age: 60 Year
  Sex: Female

DRUGS (21)
  1. ENBREL [Suspect]
     Active Substance: ETANERCEPT
     Indication: RHEUMATOID ARTHRITIS
     Dosage: 50 MG QWK
     Route: 058
     Dates: start: 20120908
  2. AZELASTINE [Concomitant]
     Active Substance: AZELASTINE
  3. MONTELUKAST [Concomitant]
     Active Substance: MONTELUKAST SODIUM
  4. QVAR [Concomitant]
     Active Substance: BECLOMETHASONE DIPROPIONATE
  5. FORADIL [Concomitant]
     Active Substance: FORMOTEROL FUMARATE
  6. COMBIVENT [Concomitant]
     Active Substance: ALBUTEROL SULFATE\IPRATROPIUM BROMIDE
  7. FLUTICASONE [Concomitant]
     Active Substance: FLUTICASONE\FLUTICASONE PROPIONATE
  8. NABUMETONE. [Concomitant]
     Active Substance: NABUMETONE
  9. LEVETIRACETAM. [Concomitant]
     Active Substance: LEVETIRACETAM
  10. DIOVAN [Concomitant]
     Active Substance: VALSARTAN
  11. KLOR-CON [Concomitant]
     Active Substance: POTASSIUM CHLORIDE
  12. HYDROCHLOROTHIAZIDE. [Concomitant]
     Active Substance: HYDROCHLOROTHIAZIDE
  13. CLONIDINE. [Concomitant]
     Active Substance: CLONIDINE
  14. CLOPIDOGREL [Concomitant]
     Active Substance: CLOPIDOGREL BISULFATE
  15. NIFEDICAL XL [Concomitant]
     Active Substance: NIFEDIPINE
  16. CEVIMELINE. [Concomitant]
     Active Substance: CEVIMELINE
  17. METOPROLOL. [Concomitant]
     Active Substance: METOPROLOL
  18. RANITIDINE [Concomitant]
     Active Substance: RANITIDINE\RANITIDINE HYDROCHLORIDE
  19. VALSARTAN. [Concomitant]
     Active Substance: VALSARTAN
  20. PANTOPRAZOLE [Concomitant]
     Active Substance: PANTOPRAZOLE SODIUM
  21. TRAMADOL. [Concomitant]
     Active Substance: TRAMADOL

REACTIONS (2)
  - Infection [None]
  - Therapy cessation [None]

NARRATIVE: CASE EVENT DATE: 201601
